FAERS Safety Report 16725549 (Version 1)
Quarter: 2019Q4

REPORT INFORMATION
  Report Type: Spontaneous
  Country: US (occurrence: US)
  Receive Date: 20190820
  Receipt Date: 20190820
  Transmission Date: 20200122
  Serious: No
  Sender: FDA-Public Use
  Company Number: None

PATIENT
  Age: 79 Year
  Sex: Male
  Weight: 92.25 kg

DRUGS (12)
  1. LOSARETAN [Concomitant]
  2. VITAMIN B12 [Concomitant]
     Active Substance: CYANOCOBALAMIN
  3. OSTEOBIFLEX [Concomitant]
  4. MYRBETRIC [Concomitant]
  5. LEVETHROXINE [Concomitant]
  6. VITAMIN D3 [Concomitant]
     Active Substance: CHOLECALCIFEROL
  7. ASPRIN [Concomitant]
     Active Substance: ASPIRIN
  8. IMATINIB 100MG TAB (SUN) [Suspect]
     Active Substance: IMATINIB MESYLATE
     Indication: CHRONIC MYELOID LEUKAEMIA
     Dosage: ?          QUANTITY:3 TABLET(S);?          THERAPY ONGOING?: Y
     Route: 048
     Dates: start: 20161030, end: 20190819
  9. LYRICA [Concomitant]
     Active Substance: PREGABALIN
  10. MELLOXICAM [Concomitant]
  11. LYRICA [Concomitant]
     Active Substance: PREGABALIN
  12. VITAMIN B6 [Concomitant]
     Active Substance: PYRIDOXINE HYDROCHLORIDE

REACTIONS (2)
  - Spondylitis [None]
  - Neuropathy peripheral [None]

NARRATIVE: CASE EVENT DATE: 20190501
